FAERS Safety Report 4928226-9 (Version None)
Quarter: 2006Q1

REPORT INFORMATION
  Report Type: 
  Country: None (occurrence: None)
  Receive Date: 20060127
  Receipt Date: 20051209
  Transmission Date: 20060701
  Serious: Yes (Other)
  Sender: FDA-Public Use
  Company Number: 2005168393

PATIENT
  Age: 64 Year
  Sex: Male
  Weight: 88.4514 kg

DRUGS (7)
  1. LYRICA [Suspect]
     Indication: NEUROPATHY
     Dosage: 300 MG (150 MG, 2 IN 1 D), ORAL
     Route: 048
     Dates: start: 20050101, end: 20050101
  2. ACTOS [Suspect]
     Indication: DIABETES MELLITUS
     Dates: end: 20050101
  3. GLIPIZIDE [Concomitant]
  4. LIPITOR [Concomitant]
  5. ENALAPRIL MALEATE [Concomitant]
  6. CENTRUM (MINERALS NOS, VITAMINS NOS) [Concomitant]
  7. ASPIRIN [Concomitant]

REACTIONS (2)
  - DRUG INTERACTION [None]
  - SWELLING [None]
